FAERS Safety Report 8645243 (Version 2)
Quarter: 2013Q3

REPORT INFORMATION
  Report Type: Spontaneous
  Country: JP (occurrence: JP)
  Receive Date: 20120702
  Receipt Date: 20130814
  Transmission Date: 20140515
  Serious: Yes (Death, Other)
  Sender: FDA-Public Use
  Company Number: JP-JNJFOC-20120609671

PATIENT
  Sex: 0

DRUGS (2)
  1. INFLIXIMAB, RECOMBINANT [Suspect]
     Indication: ACUTE GRAFT VERSUS HOST DISEASE
     Dosage: 5 MG/KG/DAY ONCE WEEKLY FOR ATLEAST 1 COURSE
     Route: 042
  2. ANTIFUNGAL MEDICATION [Concomitant]
     Indication: PRODUCT USED FOR UNKNOWN INDICATION
     Route: 065

REACTIONS (4)
  - Infection [Fatal]
  - Systemic mycosis [Unknown]
  - Bacterial infection [Unknown]
  - Off label use [Unknown]
